FAERS Safety Report 6520941-9 (Version None)
Quarter: 2009Q4

REPORT INFORMATION
  Report Type: 
  Country: None (occurrence: None)
  Receive Date: 20091229
  Receipt Date: 20091216
  Transmission Date: 20100525
  Serious: Yes (Death, Other)
  Sender: FDA-Public Use
  Company Number: AU-AMGEN-US368816

PATIENT
  Sex: Female

DRUGS (5)
  1. ENBREL [Suspect]
     Indication: RHEUMATOID ARTHRITIS
     Route: 058
     Dates: start: 20090101
  2. REMICADE [Concomitant]
  3. SOTALOL HCL [Concomitant]
     Indication: ATRIAL FIBRILLATION
  4. MELOXICAM [Concomitant]
     Dosage: 7.5MG AT NIGHT
     Dates: start: 20090101
  5. DOXYCYCLINE [Concomitant]
     Dosage: 50MG DAILY FOR 2 WEEKS
     Route: 048
     Dates: start: 20090101

REACTIONS (11)
  - BLOOD ALBUMIN DECREASED [None]
  - CARDIAC FAILURE [None]
  - CONDITION AGGRAVATED [None]
  - COR PULMONALE [None]
  - DRY EYE [None]
  - FOREIGN BODY SENSATION IN EYES [None]
  - INTERSTITIAL LUNG DISEASE [None]
  - LACRIMATION DECREASED [None]
  - OEDEMA [None]
  - ORTHOPNOEA [None]
  - ULCER [None]
